FAERS Safety Report 7572452-X (Version None)
Quarter: 2011Q2

REPORT INFORMATION
  Report Type: 
  Country: None (occurrence: None)
  Receive Date: 20110624
  Receipt Date: 20110615
  Transmission Date: 20111010
  Serious: Yes (Other)
  Sender: FDA-Public Use
  Company Number: CA-RB-027332-11

PATIENT
  Age: 24 Month

DRUGS (1)
  1. SUBOXONE [Suspect]
     Indication: PRODUCT USED FOR UNKNOWN INDICATION
     Dosage: CHILD ATE A PIECE OF AN 8 MG TABLET
     Dates: start: 20100101

REACTIONS (2)
  - ACCIDENTAL EXPOSURE [None]
  - ABNORMAL BEHAVIOUR [None]
